FAERS Safety Report 11329443 (Version 1)
Quarter: 2015Q3

REPORT INFORMATION
  Report Type: Report from Study
  Country: KR (occurrence: KR)
  Receive Date: 20150803
  Receipt Date: 20150803
  Transmission Date: 20151125
  Serious: Yes (Life-Threatening, Hospitalization)
  Sender: FDA-Public Use
  Company Number: KR-ACCORD-032788

PATIENT

DRUGS (2)
  1. CISPLATIN. [Suspect]
     Active Substance: CISPLATIN
     Indication: SMALL CELL LUNG CANCER EXTENSIVE STAGE
     Dosage: INFUSION OF 60 MG/M2 CISPLATIN OVER 60 MIN
  2. ETOPOSIDE. [Suspect]
     Active Substance: ETOPOSIDE
     Indication: SMALL CELL LUNG CANCER EXTENSIVE STAGE
     Dosage: 240 MG/M2 (2 INFUSIONS OF 120 MG/M2 DILUTED IN 1,000 ML OF 0.9% NACL AND  ADMINISTERED OVER 120 MIN.

REACTIONS (1)
  - Pneumonia [Recovered/Resolved]
